FAERS Safety Report 13147887 (Version 2)
Quarter: 2017Q1

REPORT INFORMATION
  Report Type: Report from Study
  Country: US (occurrence: US)
  Receive Date: 20170124
  Receipt Date: 20170124
  Transmission Date: 20170428
  Serious: No
  Sender: FDA-Public Use
  Company Number: US-AMGEN-USASL2016147992

PATIENT
  Age: 84 Year
  Sex: Male
  Weight: 85.26 kg

DRUGS (1)
  1. REPATHA [Suspect]
     Active Substance: EVOLOCUMAB
     Indication: BLOOD CHOLESTEROL INCREASED
     Dosage: 140 MG/ML, Q2WK
     Route: 030
     Dates: start: 20160205

REACTIONS (6)
  - Myalgia [Recovered/Resolved]
  - Injection site pain [Unknown]
  - Injection site discolouration [Unknown]
  - Injection site discomfort [Unknown]
  - Incorrect route of drug administration [Unknown]
  - Injection site bruising [Unknown]

NARRATIVE: CASE EVENT DATE: 20161019
